FAERS Safety Report 5916148-6 (Version None)
Quarter: 2008Q4

REPORT INFORMATION
  Report Type: 
  Country: None (occurrence: None)
  Receive Date: 20081013
  Receipt Date: 20081001
  Transmission Date: 20090506
  Serious: Yes (Hospitalization, Other)
  Sender: FDA-Public Use
  Company Number: US-CELGENEUS-163-21880-08030374

PATIENT
  Sex: Male
  Weight: 86.4 kg

DRUGS (2)
  1. REVLIMID [Suspect]
     Indication: MANTLE CELL LYMPHOMA
     Route: 048
     Dates: start: 20080214
  2. BORTEZOMIB [Suspect]
     Indication: MANTLE CELL LYMPHOMA
     Route: 051
     Dates: start: 20080215

REACTIONS (4)
  - ANOREXIA [None]
  - FATIGUE [None]
  - ILEUS [None]
  - PLATELET COUNT DECREASED [None]
